FAERS Safety Report 10523167 (Version 2)
Quarter: 2014Q4

REPORT INFORMATION
  Report Type: Spontaneous
  Country: GB (occurrence: GB)
  Receive Date: 20141016
  Receipt Date: 20141217
  Transmission Date: 20150528
  Serious: Yes (Other)
  Sender: FDA-Public Use
  Company Number: GB-WATSON-2014-21922

PATIENT
  Sex: Female

DRUGS (3)
  1. ALENDRONIC ACID (UNKNOWN) [Suspect]
     Active Substance: ALENDRONIC ACID
     Dosage: UNK
     Route: 048
     Dates: start: 201409
  2. ALENDRONIC ACID (UNKNOWN) [Suspect]
     Active Substance: ALENDRONIC ACID
     Indication: PRODUCT USED FOR UNKNOWN INDICATION
     Dosage: UNK
     Route: 048
     Dates: start: 201401
  3. FOSAMAX [Suspect]
     Active Substance: ALENDRONATE SODIUM
     Indication: OSTEOPOROSIS
     Dosage: UNK
     Route: 048
     Dates: start: 2005

REACTIONS (17)
  - Eye haemorrhage [Unknown]
  - Cystitis-like symptom [Unknown]
  - Pain [Unknown]
  - Fall [Unknown]
  - Musculoskeletal disorder [Unknown]
  - Chest pain [Unknown]
  - Hypoacusis [Unknown]
  - Renal disorder [Unknown]
  - Medication error [Unknown]
  - Loss of consciousness [Unknown]
  - Dysgraphia [Unknown]
  - General physical health deterioration [Unknown]
  - Dysphagia [Unknown]
  - Arthralgia [Unknown]
  - Disturbance in attention [Unknown]
  - Clavicle fracture [Unknown]
  - Wound infection [Unknown]

NARRATIVE: CASE EVENT DATE: 200506
